FAERS Safety Report 21732670 (Version 1)
Quarter: 2022Q4

REPORT INFORMATION
  Report Type: Report from Study
  Country: IT (occurrence: IT)
  Receive Date: 20221215
  Receipt Date: 20221215
  Transmission Date: 20230113
  Serious: Yes (Other)
  Sender: FDA-Public Use
  Company Number: None

PATIENT
  Age: 52 Year
  Sex: Female
  Weight: 54.5 kg

DRUGS (6)
  1. OXALIPLATIN [Suspect]
     Active Substance: OXALIPLATIN
     Indication: Adenocarcinoma of colon
     Dosage: THE PATIENT WAS ADMINISTERED 165 MG OF OXALIPLATIN ON 13/10/2022,
     Dates: start: 20221013, end: 20221013
  2. CAPECITABINE [Suspect]
     Active Substance: CAPECITABINE
     Indication: Adenocarcinoma of colon
     Dosage: DURING CYCLE NO. 4 OF THERAPY THE PATIENT TOOK 2500 MG OF
     Dates: start: 20221014, end: 20221027
  3. DEXAMETHASONE [Concomitant]
     Active Substance: DEXAMETHASONE
     Dosage: THE PATIENT TAKES DEXAMETHASONE 4 MG, 1 TABLET FOR 4-5 DAYS AFTER THE?OXALIPLATIN INFUSION.
     Dates: start: 20221014, end: 20221018
  4. PANTOPRAZOLE [Concomitant]
     Active Substance: PANTOPRAZOLE
     Dosage: THE PATIENT TAKES 40 MG PANTOPRAZOLE, 1 TIME A DAY.
  5. LEVOSULPIRIDE [Concomitant]
     Active Substance: LEVOSULPIRIDE
  6. MONTMORILLONITE [Concomitant]
     Active Substance: MONTMORILLONITE

REACTIONS (4)
  - Weight decreased [Unknown]
  - Asthenia [Unknown]
  - Loss of personal independence in daily activities [Unknown]
  - Decreased appetite [Unknown]

NARRATIVE: CASE EVENT DATE: 20221014
